FAERS Safety Report 4964551-3 (Version None)
Quarter: 2006Q2

REPORT INFORMATION
  Report Type: 
  Country: None (occurrence: None)
  Receive Date: 20060406
  Receipt Date: 20060323
  Transmission Date: 20061013
  Serious: Yes (Death)
  Sender: FDA-Public Use
  Company Number: GB-GLAXOSMITHKLINE-B0417245A

PATIENT
  Age: 68 Year
  Sex: Male

DRUGS (1)
  1. ZYBAN [Suspect]
     Route: 048
     Dates: start: 20041201

REACTIONS (6)
  - AGGRESSION [None]
  - COMPLETED SUICIDE [None]
  - CRYING [None]
  - ILL-DEFINED DISORDER [None]
  - INSOMNIA [None]
  - MOOD SWINGS [None]
